FAERS Safety Report 15585120 (Version 1)
Quarter: 2018Q4

REPORT INFORMATION
  Report Type: Spontaneous
  Country: US (occurrence: US)
  Receive Date: 20181102
  Receipt Date: 20181102
  Transmission Date: 20190205
  Serious: Yes (Other)
  Sender: FDA-Public Use
  Company Number: US-GILEAD-2018-0371566

PATIENT
  Age: 52 Year
  Sex: Male

DRUGS (12)
  1. TRUVADA [Suspect]
     Active Substance: EMTRICITABINE\TENOFOVIR DISOPROXIL FUMARATE
     Dosage: 200/300 MG, QD
     Route: 065
     Dates: start: 2015, end: 2016
  2. TRUVADA [Suspect]
     Active Substance: EMTRICITABINE\TENOFOVIR DISOPROXIL FUMARATE
     Dosage: 200/300 MG, QD
     Route: 065
     Dates: start: 2014, end: 2015
  3. ATAZANAVIR. [Concomitant]
     Active Substance: ATAZANAVIR SULFATE
  4. ABACAVIR. [Concomitant]
     Active Substance: ABACAVIR
  5. TRUVADA [Suspect]
     Active Substance: EMTRICITABINE\TENOFOVIR DISOPROXIL FUMARATE
     Dosage: 200/300 MG, QD
     Route: 065
     Dates: start: 2008, end: 2012
  6. LOPINAVIR/RITONAVIR [Concomitant]
     Active Substance: LOPINAVIR\RITONAVIR
  7. TRUVADA [Suspect]
     Active Substance: EMTRICITABINE\TENOFOVIR DISOPROXIL FUMARATE
     Indication: HIV INFECTION
     Dosage: 200/300 MG, QD
     Route: 065
     Dates: start: 2008
  8. DOLUTEGRAVIR [Concomitant]
     Active Substance: DOLUTEGRAVIR
  9. DARUNAVIR;RITONAVIR [Concomitant]
  10. RALTEGRAVIR. [Concomitant]
     Active Substance: RALTEGRAVIR
  11. TRUVADA [Suspect]
     Active Substance: EMTRICITABINE\TENOFOVIR DISOPROXIL FUMARATE
     Dosage: 200/300 MG, QD
     Route: 065
     Dates: start: 2012, end: 2014
  12. MARAVIROC [Concomitant]
     Active Substance: MARAVIROC

REACTIONS (3)
  - Genotype drug resistance test positive [Unknown]
  - Drug ineffective [Unknown]
  - Viral load increased [Not Recovered/Not Resolved]
